FAERS Safety Report 4453951-6 (Version None)
Quarter: 2004Q3

REPORT INFORMATION
  Report Type: 
  Country: None (occurrence: None)
  Receive Date: 20040920
  Receipt Date: 20040913
  Transmission Date: 20050211
  Serious: Yes (Hospitalization)
  Sender: FDA-Public Use
  Company Number: GB-GLAXOSMITHKLINE-A0525389A

PATIENT
  Age: 55 Year
  Sex: Female

DRUGS (5)
  1. NAVELBINE [Suspect]
     Indication: NON-SMALL CELL LUNG CANCER
     Dosage: 25MGM2 CYCLIC
     Route: 042
     Dates: start: 20031024
  2. CISPLATIN [Suspect]
     Indication: NON-SMALL CELL LUNG CANCER
     Dosage: 80MGM2 CYCLIC
     Route: 042
     Dates: start: 20031024
  3. NYSTATIN [Concomitant]
  4. GLICLAZIDE [Concomitant]
  5. METFORMIN [Concomitant]

REACTIONS (7)
  - CREPITATIONS [None]
  - INFLUENZA LIKE ILLNESS [None]
  - LOWER RESPIRATORY TRACT INFECTION [None]
  - MALAISE [None]
  - NAUSEA [None]
  - PYREXIA [None]
  - VOMITING [None]
